FAERS Safety Report 8592210-7 (Version None)
Quarter: 2012Q3

REPORT INFORMATION
  Report Type: 
  Country: None (occurrence: None)
  Receive Date: 20120814
  Receipt Date: 20120807
  Transmission Date: 20120928
  Serious: Yes (Death, Hospitalization)
  Sender: FDA-Public Use
  Company Number: US-CELGENEUS-163-C5013-11053380

PATIENT
  Sex: Male
  Weight: 49.9 kg

DRUGS (69)
  1. VITAMIN D [Concomitant]
     Dosage: 50000 UNITS
     Route: 048
  2. PIPERACILLIN AND TAZOBACTAM [Concomitant]
     Dosage: 4.5 GRAM
     Route: 041
     Dates: start: 20110525, end: 20110611
  3. POTASSIUM CHLORIDE [Concomitant]
     Dosage: 10 MILLIEQUIVALENTS
     Route: 041
     Dates: start: 20110526, end: 20110527
  4. SODIUM POTASSIUM PHOSPHATE [Concomitant]
     Dosage: 2 PACKETS
     Route: 048
     Dates: start: 20110527, end: 20110527
  5. LENALIDOMIDE [Suspect]
     Dosage: 20 MILLIGRAM
     Route: 048
     Dates: start: 20110517, end: 20110523
  6. FUROSEMIDE [Concomitant]
     Dosage: 20 MILLIGRAM
     Route: 048
     Dates: start: 20110510
  7. FUROSEMIDE [Concomitant]
     Dosage: 20MG-40MG
     Route: 041
     Dates: start: 20110529, end: 20110529
  8. NEURONTIN [Concomitant]
     Dosage: 300 MILLIGRAM
     Route: 048
  9. SENNA [Concomitant]
     Dosage: 2 TABLET
     Route: 048
     Dates: start: 20110605, end: 20110611
  10. METOPROLOL TARTRATE [Concomitant]
     Dosage: 37.5 MILLIGRAM
     Route: 048
     Dates: start: 20110610, end: 20110611
  11. METOPROLOL TARTRATE [Concomitant]
     Dosage: 5 MILLIGRAM
     Route: 041
     Dates: start: 20110610, end: 20110610
  12. MORPHINE SULFATE [Concomitant]
     Indication: PAIN
     Dosage: .5 MILLIGRAM
     Route: 041
     Dates: start: 20110602, end: 20110604
  13. MORPHINE SULFATE [Concomitant]
     Dosage: 1 MILLIGRAM
     Route: 041
     Dates: start: 20110604, end: 20110611
  14. MORPHINE SULFATE [Concomitant]
     Dosage: 7.5 MILLIGRAM
     Route: 048
     Dates: start: 20110608, end: 20110611
  15. NEXIUM [Concomitant]
     Dosage: 40 MILLIGRAM
     Route: 048
     Dates: start: 20110610, end: 20110611
  16. SANTYL [Concomitant]
     Dosage: 1 APPLICATION
     Route: 061
     Dates: start: 20110609, end: 20110611
  17. LEVOTHYROXINE SODIUM [Concomitant]
     Dosage: 25 MICROGRAM
     Route: 041
     Dates: start: 20110525, end: 20110526
  18. POTASSIUM CHLORIDE [Concomitant]
     Dosage: 20 MILLIEQUIVALENTS
     Route: 041
     Dates: start: 20110526, end: 20110526
  19. SODIUM POTASSIUM PHOSPHATE [Concomitant]
     Dosage: 1 TABLET
     Route: 048
     Dates: start: 20110528, end: 20110528
  20. LENALIDOMIDE [Suspect]
     Indication: PROSTATE CANCER
     Dosage: 25 MILLIGRAM
     Route: 048
     Dates: start: 20110426
  21. PREDNISONE TAB [Suspect]
     Indication: PROSTATE CANCER
     Dosage: 5-10MG
     Route: 048
     Dates: start: 20110426
  22. PREDNISONE TAB [Suspect]
     Dosage: 5-10MG
     Route: 048
     Dates: start: 20110517, end: 20110606
  23. DICLOXACILLIN [Concomitant]
     Dosage: 500 MILLIGRAM
     Route: 048
     Dates: start: 20110426
  24. DILTIAZEM HCL [Concomitant]
     Dosage: 30MG-45MG-60MG
     Route: 048
     Dates: start: 20110529, end: 20110609
  25. METHADONE HYDROCHLORIDE [Concomitant]
     Dosage: 10 MILLIGRAM
     Route: 048
     Dates: start: 20110525, end: 20110530
  26. LEVOTHYROXINE SODIUM [Concomitant]
     Dosage: 50 MICROGRAM
     Route: 048
     Dates: start: 20110609, end: 20110611
  27. METHYLPREDNISOLONE SODIUM SUCCINATE [Concomitant]
     Dosage: 4 MILLIGRAM
     Dates: start: 20110607, end: 20110608
  28. SODIUM PHOSPHATE [Concomitant]
     Dosage: 15 MILLIMOLE
     Route: 041
     Dates: start: 20110602, end: 20110602
  29. MORPHINE SULFATE [Concomitant]
     Indication: PAIN
     Dosage: 5 MILLIGRAM
     Route: 048
     Dates: start: 20110605, end: 20110608
  30. DEXAMETHASONE [Concomitant]
     Dosage: 8 MILLIGRAM
     Route: 048
     Dates: start: 20110426
  31. VALIUM [Concomitant]
     Dosage: 5 MILLIGRAM
     Route: 048
  32. VANCOMYCIN [Concomitant]
     Dosage: 750 MILLIGRAM
     Route: 041
     Dates: start: 20110601, end: 20110610
  33. METOPROLOL TARTRATE [Concomitant]
     Dosage: 5 MILLIGRAM
     Route: 041
     Dates: start: 20110607, end: 20110608
  34. XENADERM [Concomitant]
     Dosage: 1 APPLICATION
     Route: 061
     Dates: start: 20110609, end: 20110611
  35. BISACODYL [Concomitant]
     Dosage: 10 MILLIGRAM
     Route: 054
     Dates: start: 20110605, end: 20110605
  36. MAGNESIUM SULFATE [Concomitant]
     Dosage: 2 GRAM
     Dates: start: 20110526, end: 20110526
  37. ASPIRIN [Concomitant]
     Indication: THROMBOSIS PROPHYLAXIS
     Dosage: 81 MILLIGRAM
     Route: 048
     Dates: start: 20110426
  38. ONDANSETRON [Concomitant]
     Indication: NAUSEA
     Dosage: 8 MILLIGRAM
     Route: 048
     Dates: start: 20110426, end: 20110607
  39. LEVOTHYROXINE SODIUM [Concomitant]
     Dosage: 50 MICROGRAM
     Route: 048
     Dates: start: 20110527, end: 20110607
  40. GABAPENTIN [Concomitant]
     Dosage: 300 MILLIGRAM
     Route: 048
     Dates: start: 20110525, end: 20110530
  41. MAGNESIUM SULFATE [Concomitant]
     Dosage: 4 GRAM
     Dates: start: 20110603, end: 20110603
  42. MAGNESIUM SULFATE [Concomitant]
     Dosage: 2 GRAM
     Dates: start: 20110606, end: 20110606
  43. SODIUM POTASSIUM PHOSPHATE [Concomitant]
     Dosage: 1 TABLET
     Route: 048
     Dates: start: 20110603, end: 20110603
  44. DILTIAZEM HCL [Concomitant]
     Dosage: 120 MILLIGRAM
     Route: 048
     Dates: start: 20110527, end: 20110529
  45. DILTIAZEM HCL [Concomitant]
     Dosage: 10 MILLIGRAM
     Route: 041
     Dates: start: 20110530, end: 20110530
  46. DILTIAZEM HCL [Concomitant]
     Dosage: 15 MILLIGRAM
     Route: 041
     Dates: start: 20110601, end: 20110601
  47. ONDANSETRON [Concomitant]
     Indication: VOMITING
     Dosage: 4 MILLIGRAM
     Route: 041
     Dates: start: 20110607, end: 20110611
  48. SYNTHROID [Concomitant]
     Dosage: 50 MICROGRAM
     Route: 048
  49. MORPHINE SULFATE [Concomitant]
     Dosage: 1 MILLIGRAM
     Route: 041
  50. DOCUSATE SODIUM [Concomitant]
     Dosage: 100 MILLIGRAM
     Route: 048
     Dates: start: 20110605, end: 20110611
  51. LEVOTHYROXINE SODIUM [Concomitant]
     Dosage: 25 MICROGRAM
     Route: 041
     Dates: start: 20110608, end: 20110608
  52. POLYETHYLENE GLYCOL [Concomitant]
     Indication: CONSTIPATION
     Dosage: 1 PACKET
     Route: 048
     Dates: start: 20110527, end: 20110610
  53. DILTIAZEM HCL [Concomitant]
     Dosage: 10 MILLIGRAM
     Route: 041
     Dates: start: 20110607, end: 20110607
  54. METOPROLOL TARTRATE [Concomitant]
     Dosage: 25 MILLIGRAM
     Route: 048
     Dates: start: 20110609, end: 20110610
  55. NEXIUM [Concomitant]
     Dosage: 40 MILLIGRAM
     Dates: start: 20110607, end: 20110610
  56. MAGNESIUM SULFATE [Concomitant]
     Dosage: 4 GRAM
     Dates: start: 20110529, end: 20110529
  57. SIMETHICONE [Concomitant]
     Dosage: 80 MILLIGRAM
     Route: 048
     Dates: start: 20110604, end: 20110604
  58. DOCETAXEL [Suspect]
     Indication: PROSTATE CANCER
     Dosage: 115 MILLIGRAM
     Route: 065
     Dates: start: 20110426
  59. DOCETAXEL [Suspect]
     Dosage: 115 MILLIGRAM
     Route: 065
     Dates: start: 20110517, end: 20110517
  60. AMBIEN CR [Concomitant]
     Dosage: 12.5 MILLIGRAM
     Route: 048
  61. DILAUDID [Concomitant]
     Route: 065
  62. DILTIAZEM HCL [Concomitant]
     Indication: BLOOD PRESSURE
     Dosage: 30 MILLIGRAM
     Route: 048
     Dates: start: 20110525, end: 20110601
  63. DILTIAZEM HCL [Concomitant]
     Dosage: 10 MILLIGRAM
     Route: 041
     Dates: start: 20110525, end: 20110525
  64. FUROSEMIDE [Concomitant]
     Dosage: 20 MILLIGRAM
     Route: 041
     Dates: start: 20110607, end: 20110607
  65. MINERAL OIL [Concomitant]
     Route: 048
  66. PROCHLORPERAZINE [Concomitant]
     Dosage: 10 MILLIGRAM
     Route: 048
     Dates: start: 20110426
  67. DOCUSATE SODIUM [Concomitant]
     Dosage: 100 MILLIGRAM
     Route: 048
     Dates: start: 20110527, end: 20110529
  68. ACETAMINOPHEN [Concomitant]
     Indication: PAIN
     Dosage: 650 MILLIGRAM
     Route: 048
     Dates: start: 20110601, end: 20110611
  69. FAMOTIDINE [Concomitant]
     Dosage: 10 MILLIGRAM
     Route: 040
     Dates: start: 20110607, end: 20110608

REACTIONS (2)
  - GENERAL PHYSICAL HEALTH DETERIORATION [None]
  - DEHYDRATION [None]
